FAERS Safety Report 11539745 (Version 3)
Quarter: 2015Q4

REPORT INFORMATION
  Report Type: Spontaneous
  Country: US (occurrence: US)
  Receive Date: 20150923
  Receipt Date: 20151020
  Transmission Date: 20160304
  Serious: Yes (Death)
  Sender: FDA-Public Use
  Company Number: US-JAZZ-2015-US-014250

PATIENT
  Age: 30 Year
  Sex: Female

DRUGS (1)
  1. CLOZAPINE USP, ODT [Suspect]
     Active Substance: CLOZAPINE
     Dosage: 300 MG, QD
     Route: 048
     Dates: start: 20140313

REACTIONS (1)
  - Death [Fatal]

NARRATIVE: CASE EVENT DATE: 201506
